APPROVED DRUG PRODUCT: PROKLAR
Active Ingredient: SULFAMETHIZOLE
Strength: 500MG
Dosage Form/Route: TABLET;ORAL
Application: A080273 | Product #001
Applicant: FOREST PHARMACEUTICALS INC
Approved: Approved Prior to Jan 1, 1982 | RLD: No | RS: No | Type: DISCN